FAERS Safety Report 16989657 (Version 1)
Quarter: 2019Q4

REPORT INFORMATION
  Report Type: Spontaneous
  Country: US (occurrence: US)
  Receive Date: 20191104
  Receipt Date: 20191104
  Transmission Date: 20200122
  Serious: Yes (Hospitalization, Other)
  Sender: FDA-Public Use
  Company Number: US-APOTEX-2019AP024229

PATIENT
  Age: 13 Month
  Sex: Male
  Weight: 2.3 kg

DRUGS (2)
  1. ACETAMINOPHEN. [Suspect]
     Active Substance: ACETAMINOPHEN
     Indication: RESPIRATORY SYNCYTIAL VIRUS INFECTION
     Dosage: 10 - 15 MG/KG/DOSE
     Route: 065
  2. ACETAMINOPHEN. [Suspect]
     Active Substance: ACETAMINOPHEN
     Indication: PYREXIA

REACTIONS (2)
  - Toxicity to various agents [Unknown]
  - Hepatic failure [Recovering/Resolving]
